FAERS Safety Report 11927195 (Version 2)
Quarter: 2016Q1

REPORT INFORMATION
  Report Type: Spontaneous
  Country: US (occurrence: US)
  Receive Date: 20160119
  Receipt Date: 20160204
  Transmission Date: 20160526
  Serious: No
  Sender: FDA-Public Use
  Company Number: US-009507513-1601USA003297

PATIENT
  Sex: Female

DRUGS (1)
  1. COZAAR [Suspect]
     Active Substance: LOSARTAN POTASSIUM
     Indication: HYPERTENSION
     Dosage: 50 MG TABLET, SHE ONLY TAKES ONE WHEN BLOOD PRESSURE IS HIGH
     Route: 048

REACTIONS (2)
  - Tachycardia [Unknown]
  - Inappropriate schedule of drug administration [Unknown]
